FAERS Safety Report 8126475-2 (Version None)
Quarter: 2012Q1

REPORT INFORMATION
  Report Type: 
  Country: None (occurrence: None)
  Receive Date: 20120209
  Receipt Date: 20120201
  Transmission Date: 20120608
  Serious: Yes (Hospitalization, Other)
  Sender: FDA-Public Use
  Company Number: JP-ASTRAZENECA-2012SE04118

PATIENT
  Age: 25923 Day
  Sex: Female
  Weight: 40 kg

DRUGS (3)
  1. CRESTOR [Suspect]
     Route: 048
     Dates: start: 20111121, end: 20111225
  2. CRESTOR [Suspect]
     Route: 048
     Dates: start: 20110714, end: 20111120
  3. CRESTOR [Suspect]
     Indication: DYSLIPIDAEMIA
     Route: 048
     Dates: start: 20070903, end: 20110501

REACTIONS (1)
  - INTERSTITIAL LUNG DISEASE [None]
